FAERS Safety Report 14658001 (Version 1)
Quarter: 2018Q1

REPORT INFORMATION
  Report Type: Report from Study
  Country: US (occurrence: US)
  Receive Date: 20180320
  Receipt Date: 20180320
  Transmission Date: 20180509
  Serious: Yes (Other)
  Sender: FDA-Public Use
  Company Number: US-ROCHE-2090342

PATIENT

DRUGS (7)
  1. IRINOTECAN [Suspect]
     Active Substance: IRINOTECAN
     Indication: COLORECTAL CANCER METASTATIC
     Dosage: OVER 90 MINUTES
     Route: 042
  2. LEUCOVORIN. [Suspect]
     Active Substance: LEUCOVORIN
     Indication: COLORECTAL CANCER METASTATIC
     Dosage: OVER 120 MINUTES (ARM B AND C)?TREATMENT ON DAYS 1 AND 15 OF A 28-DAY CYCLE IN ARMC
     Route: 042
  3. BEVACIZUMAB. [Suspect]
     Active Substance: BEVACIZUMAB
     Indication: COLORECTAL CANCER METASTATIC
     Dosage: OVER 30 TO 90 MINUTES.?(ARM A,  B AND C).?TREATMENT ON DAYS 1 AND 15 OF A 28-DAY CYCLE IN ARM C
     Route: 042
  4. 5-FU [Suspect]
     Active Substance: FLUOROURACIL
     Indication: COLORECTAL CANCER METASTATIC
     Dosage: ARM B AN C?TREATMENT ON DAYS 1 AND 15 OF A 28-DAY CYCLE IN ARM C
     Route: 040
  5. OXALIPLATIN. [Suspect]
     Active Substance: OXALIPLATIN
     Indication: COLORECTAL CANCER METASTATIC
     Dosage: OVER 120 MINUTES (ARM A)
     Route: 042
  6. 5-FU [Suspect]
     Active Substance: FLUOROURACIL
     Dosage: OVER 46 HOURS (ARM B)
     Route: 042
  7. OXALIPLATIN. [Suspect]
     Active Substance: OXALIPLATIN
     Dosage: (ARM B AND C)?TREATMENT ON DAYS 1 AND 15 OF A 28-DAY CYCLE IN ARM C
     Route: 042

REACTIONS (21)
  - Haemorrhage [Unknown]
  - Hypertension [Unknown]
  - Fatigue [Unknown]
  - Dehydration [Unknown]
  - Peripheral sensory neuropathy [Unknown]
  - Hypersensitivity [Unknown]
  - Haemoglobin [Unknown]
  - Palmar-plantar erythrodysaesthesia syndrome [Unknown]
  - Decreased appetite [Unknown]
  - Vomiting [Unknown]
  - Constipation [Unknown]
  - Epistaxis [Unknown]
  - Peripheral motor neuropathy [Unknown]
  - Thrombosis in device [Unknown]
  - Embolism [Unknown]
  - Diarrhoea [Unknown]
  - Intestinal perforation [Unknown]
  - Neutrophil count [Unknown]
  - Platelet toxicity [Unknown]
  - Nausea [Unknown]
  - Stomatitis [Unknown]
